FAERS Safety Report 8775897 (Version 1)
Quarter: 2012Q4

REPORT INFORMATION
  Report Type: Report from Study
  Country: US (occurrence: US)
  Receive Date: 20120910
  Receipt Date: 20120910
  Transmission Date: 20130627
  Serious: Yes (Hospitalization)
  Sender: FDA-Public Use
  Company Number: US-ROCHE-1109952

PATIENT
  Age: 70 Year
  Sex: Male
  Weight: 79.82 kg

DRUGS (17)
  1. AVASTIN [Suspect]
     Indication: NON-SMALL CELL LUNG CANCER
     Route: 042
     Dates: start: 20100622, end: 20100803
  2. PEMETREXED DISODIUM [Suspect]
     Indication: NON-SMALL CELL LUNG CANCER
     Route: 042
     Dates: start: 20100622, end: 20100803
  3. PEMETREXED DISODIUM [Suspect]
     Route: 042
     Dates: start: 20100929
  4. CARBOPLATIN [Suspect]
     Indication: NON-SMALL CELL LUNG CANCER
     Dosage: 6AUC
     Route: 042
     Dates: start: 20100622, end: 20100803
  5. NEXIUM HP7 [Concomitant]
     Route: 065
     Dates: start: 2009
  6. BYSTOLIC [Concomitant]
     Route: 065
     Dates: start: 201001
  7. COMPAZINE [Concomitant]
  8. FOLIC ACID [Concomitant]
     Route: 065
     Dates: start: 20100115
  9. MEGACE [Concomitant]
     Route: 065
     Dates: start: 20100810
  10. ALLEGRA [Concomitant]
  11. TIMOPTIC [Concomitant]
  12. DIFLUPREDNATE [Concomitant]
  13. CIPROFLOXACIN [Concomitant]
  14. ZESTRIL [Concomitant]
     Route: 065
     Dates: start: 2008
  15. VITAMIN B12 [Concomitant]
     Route: 065
     Dates: start: 20120115
  16. ASPIRIN [Concomitant]
  17. DECADRON [Concomitant]

REACTIONS (1)
  - Inappropriate antidiuretic hormone secretion [Recovering/Resolving]
